FAERS Safety Report 5632918-6 (Version None)
Quarter: 2008Q1

REPORT INFORMATION
  Report Type: 
  Country: None (occurrence: None)
  Receive Date: 20080221
  Receipt Date: 20080211
  Transmission Date: 20080703
  Serious: Yes (Other)
  Sender: FDA-Public Use
  Company Number: PHEH2008US01754

PATIENT
  Sex: Female

DRUGS (1)
  1. FEMARA [Suspect]
     Dosage: 2.5 MG, UNK
     Route: 048

REACTIONS (2)
  - BLADDER CANCER [None]
  - URINARY TRACT INFECTION [None]
